FAERS Safety Report 8813642 (Version 3)
Quarter: 2012Q4

REPORT INFORMATION
  Report Type: 
  Country: US (occurrence: US)
  Receive Date: 20120927
  Receipt Date: 20121126
  Transmission Date: 20130627
  Serious: Yes (Hospitalization, Disabling, Other)
  Sender: FDA-Public Use
  Company Number: US-ASTRAZENECA-2012SE73293

PATIENT
  Age: 86 Year
  Sex: Female
  Weight: 79.8 kg

DRUGS (19)
  1. NEXIUM [Suspect]
     Indication: GASTROOESOPHAGEAL REFLUX DISEASE
     Route: 048
     Dates: end: 20120709
  2. NEXIUM [Suspect]
     Indication: PHARYNGEAL ULCERATION
     Route: 048
     Dates: end: 20120709
  3. NEXIUM [Suspect]
     Indication: GASTROOESOPHAGEAL REFLUX DISEASE
     Route: 048
     Dates: end: 20120709
  4. NEXIUM [Suspect]
     Indication: GASTROOESOPHAGEAL REFLUX DISEASE
     Route: 048
     Dates: start: 20120710
  5. NEXIUM [Suspect]
     Indication: PHARYNGEAL ULCERATION
     Route: 048
     Dates: start: 20120710
  6. NEXIUM [Suspect]
     Indication: GASTROOESOPHAGEAL REFLUX DISEASE
     Route: 048
     Dates: start: 20120710
  7. NEXIUM [Suspect]
     Indication: GASTROOESOPHAGEAL REFLUX DISEASE
     Route: 048
  8. NEXIUM [Suspect]
     Indication: PHARYNGEAL ULCERATION
     Route: 048
  9. NEXIUM [Suspect]
     Indication: GASTROOESOPHAGEAL REFLUX DISEASE
     Route: 048
  10. LIALDA DR [Concomitant]
  11. FLORASTOR [Concomitant]
  12. VITAMIN D [Concomitant]
  13. EFFEXOR [Concomitant]
  14. NORVASC [Concomitant]
  15. BENICAR [Concomitant]
  16. SYNTHROID [Concomitant]
     Dosage: 100 mcg daily
  17. LIPITOR [Concomitant]
  18. LOPRESSOR [Concomitant]
     Dosage: METOPROLOL TARTARATE
  19. MELOXICAM [Concomitant]

REACTIONS (21)
  - Vaginal abscess [Recovered/Resolved]
  - Colon adenoma [Unknown]
  - Breast cancer female [Unknown]
  - Clostridium difficile infection [Recovering/Resolving]
  - Gastrooesophageal reflux disease [Recovering/Resolving]
  - Cellulitis [Unknown]
  - Diverticulitis [Unknown]
  - Colitis [Unknown]
  - Hiatus hernia [Unknown]
  - Anal fistula [Unknown]
  - Perineal abscess [Unknown]
  - Precancerous mucosal lesion [Unknown]
  - Perirectal abscess [Unknown]
  - Dysphagia [Unknown]
  - Haemorrhoids [Unknown]
  - Proctocolitis [Unknown]
  - Crohn^s disease [Unknown]
  - Intestinal mass [Unknown]
  - Thyroid disorder [Unknown]
  - Pharyngeal ulceration [Unknown]
  - Intentional drug misuse [Unknown]
